FAERS Safety Report 5511646-1 (Version None)
Quarter: 2007Q4

REPORT INFORMATION
  Report Type: 
  Country: None (occurrence: None)
  Receive Date: 20071109
  Receipt Date: 20071026
  Transmission Date: 20080405
  Serious: Yes (Other)
  Sender: FDA-Public Use
  Company Number: GB-RANBAXY-2007RR-11089

PATIENT

DRUGS (6)
  1. SIMVASTATIN [Suspect]
     Indication: MYOCARDIAL ISCHAEMIA
     Dosage: 40 MG, UNK
     Route: 048
     Dates: start: 20070501, end: 20071001
  2. DISPERSIBLE ASPIRIN 75MG TABLETS BP [Concomitant]
     Dosage: 75 MG, UNK
     Route: 048
  3. ATENOLOL TABLETS BP 50MG [Concomitant]
     Dosage: 50 MG, UNK
     Route: 048
  4. ATORVASTATIN CALCIUM [Concomitant]
     Dosage: 10 MG, UNK
  5. BENDROFLUMETHIAZIDE [Concomitant]
     Dosage: 2.5 MG, UNK
     Route: 048
  6. GLYCERYL TRINITRATE [Concomitant]

REACTIONS (1)
  - ANGINA PECTORIS [None]
